FAERS Safety Report 18570055 (Version 1)
Quarter: 2020Q4

REPORT INFORMATION
  Report Type: Spontaneous
  Country: US (occurrence: US)
  Receive Date: 20201202
  Receipt Date: 20201202
  Transmission Date: 20210114
  Serious: Yes (Disabling)
  Sender: FDA-Public Use
  Company Number: None

PATIENT
  Age: 15 Year
  Sex: Female
  Weight: 69.75 kg

DRUGS (7)
  1. VITAMIN C [Concomitant]
     Active Substance: ASCORBIC ACID
  2. EPIDIOLEX [Suspect]
     Active Substance: CANNABIDIOL
     Indication: SEIZURE
     Dosage: ?          QUANTITY:4.2 ML;?
     Route: 048
  3. EPIDIOLEX [Concomitant]
     Active Substance: CANNABIDIOL
  4. VALPORIC ACID [Concomitant]
     Active Substance: VALPROIC ACID
  5. MULTIVITAMINS FOR KIDS [Concomitant]
  6. VITAMIN B12 [Concomitant]
     Active Substance: CYANOCOBALAMIN
  7. ONFI [Concomitant]
     Active Substance: CLOBAZAM

REACTIONS (4)
  - Tremor [None]
  - Dyskinesia [None]
  - Hepatic enzyme increased [None]
  - Condition aggravated [None]

NARRATIVE: CASE EVENT DATE: 20201115
